FAERS Safety Report 6391507-9 (Version None)
Quarter: 2009Q4

REPORT INFORMATION
  Report Type: 
  Country: None (occurrence: None)
  Receive Date: 20091006
  Receipt Date: 20091006
  Transmission Date: 20100525
  Serious: Yes (Life-Threatening)
  Sender: FDA-Public Use
  Company Number: None

PATIENT
  Sex: Male
  Weight: 75 kg

DRUGS (9)
  1. RISPERDAL CONSTA [Suspect]
     Indication: AGGRESSION
     Dosage: 50MGS IM   :  37.5MGS
     Route: 030
     Dates: start: 20090101, end: 20090401
  2. RISPERDAL CONSTA [Suspect]
     Indication: SCHIZOPHRENIA, PARANOID TYPE
     Dosage: 50MGS IM   :  37.5MGS
     Route: 030
     Dates: start: 20090101, end: 20090401
  3. RISPERDAL CONSTA [Suspect]
     Indication: AGGRESSION
     Dosage: 50MGS IM   :  37.5MGS
     Route: 030
     Dates: start: 20090401, end: 20091003
  4. RISPERDAL CONSTA [Suspect]
     Indication: SCHIZOPHRENIA, PARANOID TYPE
     Dosage: 50MGS IM   :  37.5MGS
     Route: 030
     Dates: start: 20090401, end: 20091003
  5. LEPONEX [Concomitant]
  6. SOLIAN [Concomitant]
  7. ZYPREXA [Concomitant]
  8. SEROQUEL [Concomitant]
  9. STELAZINE [Concomitant]

REACTIONS (1)
  - SUICIDAL IDEATION [None]
